FAERS Safety Report 4368580-2 (Version None)
Quarter: 2004Q2

REPORT INFORMATION
  Report Type: 
  Country: None (occurrence: None)
  Receive Date: 20040528
  Receipt Date: 20040514
  Transmission Date: 20050107
  Serious: Yes (Hospitalization)
  Sender: FDA-Public Use
  Company Number: 2004SE02737

PATIENT
  Age: 76 Year
  Sex: Male
  Weight: 85 kg

DRUGS (8)
  1. ROSUVASTATIN [Suspect]
     Indication: CARDIAC FAILURE CONGESTIVE
     Dosage: 10 MG QD PO
     Route: 048
     Dates: start: 20031229, end: 20040510
  2. NIMESULIDE [Suspect]
  3. VALSARTAN [Concomitant]
  4. BISOPROLOL [Concomitant]
  5. FUROSEMIDE [Concomitant]
  6. METAXALONE [Concomitant]
  7. WARFARINE [Concomitant]
  8. ALLOPURINOL [Concomitant]

REACTIONS (13)
  - ASTHMA [None]
  - GAMMA-GLUTAMYLTRANSFERASE INCREASED [None]
  - HAEMATURIA [None]
  - HAEMOGLOBIN DECREASED [None]
  - HEPATIC ENZYME INCREASED [None]
  - INTERNATIONAL NORMALISED RATIO INCREASED [None]
  - PLEURAL FIBROSIS [None]
  - PULMONARY FIBROSIS [None]
  - RENAL FAILURE [None]
  - STAPHYLOCOCCAL SEPSIS [None]
  - STEVENS-JOHNSON SYNDROME [None]
  - VASCULITIS [None]
  - WEIGHT DECREASED [None]
